FAERS Safety Report 4380447-2 (Version None)
Quarter: 2004Q2

REPORT INFORMATION
  Report Type: 
  Country: None (occurrence: None)
  Receive Date: 20040614
  Receipt Date: 20040602
  Transmission Date: 20050107
  Serious: Yes (Other)
  Sender: FDA-Public Use
  Company Number: 2004-02449

PATIENT
  Age: 83 Year
  Sex: Male

DRUGS (2)
  1. VERAPAMIL [Suspect]
     Dosage: ORAL
     Route: 048
  2. COLCHICINE (WATSON LABORATORIES) TABLET, 0.6 MG [Suspect]
     Indication: GOUT
     Dosage: 2 MG, OVER 2 DAYS, ORAL
     Route: 048

REACTIONS (2)
  - DRUG INTERACTION [None]
  - QUADRIPARESIS [None]
